FAERS Safety Report 19770257 (Version 1)
Quarter: 2021Q3

REPORT INFORMATION
  Report Type: Report from Study
  Country: GT (occurrence: GT)
  Receive Date: 20210901
  Receipt Date: 20210901
  Transmission Date: 20211014
  Serious: Yes (Other)
  Sender: FDA-Public Use
  Company Number: NVSC2021GT196823

PATIENT
  Age: 66 Year
  Sex: Male

DRUGS (1)
  1. CO?DIOVAN [Suspect]
     Active Substance: HYDROCHLOROTHIAZIDE\VALSARTAN
     Indication: PRODUCT USED FOR UNKNOWN INDICATION
     Dosage: UNK, STARTED 3 MONTHS AGO
     Route: 065

REACTIONS (4)
  - Diabetes mellitus [Unknown]
  - Memory impairment [Unknown]
  - Hypoacusis [Unknown]
  - Hypertension [Unknown]
